FAERS Safety Report 23742234 (Version 2)
Quarter: 2024Q2

REPORT INFORMATION
  Report Type: Spontaneous
  Country: CA (occurrence: CA)
  Receive Date: 20240415
  Receipt Date: 20240417
  Transmission Date: 20240716
  Serious: Yes (Life-Threatening, Hospitalization, Other)
  Sender: FDA-Public Use
  Company Number: CA-MLMSERVICE-20240401-PI001902-00034-1

PATIENT
  Age: 46 Year
  Sex: Male

DRUGS (6)
  1. AMIODARONE HYDROCHLORIDE [Suspect]
     Active Substance: AMIODARONE HYDROCHLORIDE
     Indication: Ventricular arrhythmia
     Dosage: UNK
     Dates: start: 2018
  2. BISOPROLOL [Concomitant]
     Active Substance: BISOPROLOL\BISOPROLOL FUMARATE
     Indication: Ventricular arrhythmia
     Dosage: UNK
  3. RIVAROXABAN [Concomitant]
     Active Substance: RIVAROXABAN
     Indication: Ventricular arrhythmia
     Dosage: UNK
  4. FUROSEMIDE [Concomitant]
     Active Substance: FUROSEMIDE
     Indication: Ventricular arrhythmia
     Dosage: UNK
  5. RAMIPRIL [Concomitant]
     Active Substance: RAMIPRIL
     Indication: Ventricular arrhythmia
     Dosage: UNK
  6. IVABRADINE [Concomitant]
     Active Substance: IVABRADINE
     Indication: Ventricular arrhythmia
     Dosage: UNK

REACTIONS (4)
  - Ventricular tachycardia [Recovered/Resolved]
  - Mitral valve incompetence [Recovered/Resolved]
  - Hyperthyroidism [Recovered/Resolved]
  - Atrial fibrillation [Recovered/Resolved]
